FAERS Safety Report 7628989-8 (Version None)
Quarter: 2011Q3

REPORT INFORMATION
  Report Type: 
  Country: None (occurrence: None)
  Receive Date: 20110722
  Receipt Date: 20110302
  Transmission Date: 20111222
  Serious: No
  Sender: FDA-Public Use
  Company Number: US-MYLANLABS-2011S1004473

PATIENT
  Sex: Female
  Weight: 80.74 kg

DRUGS (5)
  1. ALTACE [Concomitant]
     Indication: BLOOD PRESSURE INCREASED
     Dates: start: 19960101
  2. CLONIDINE HYDROCHLORIDE [Suspect]
     Indication: BLOOD PRESSURE INCREASED
     Route: 048
     Dates: start: 20080101
  3. LANTUS [Concomitant]
     Indication: DIABETES MELLITUS
     Dates: start: 20010101
  4. ATENOLOL [Concomitant]
     Indication: BLOOD PRESSURE INCREASED
     Dosage: USING 25MG TABLET
     Dates: start: 19960101
  5. NORVASC [Suspect]
     Indication: BLOOD PRESSURE INCREASED
     Route: 048
     Dates: start: 20080101

REACTIONS (3)
  - BURNING SENSATION [None]
  - DYSPNOEA [None]
  - MUSCLE SPASMS [None]
